FAERS Safety Report 7316208-1 (Version None)
Quarter: 2011Q1

REPORT INFORMATION
  Report Type: 
  Country: None (occurrence: None)
  Receive Date: 20110225
  Receipt Date: 20110203
  Transmission Date: 20110831
  Serious: Yes (Death, Other)
  Sender: FDA-Public Use
  Company Number: FR-CEPHALON-2011000549

PATIENT
  Sex: Female

DRUGS (4)
  1. ACTIQ [Suspect]
     Indication: BREAKTHROUGH PAIN
     Route: 002
  2. DURAGESIC-100 [Concomitant]
  3. ACTIQ [Suspect]
     Route: 002
  4. MORPHINE [Concomitant]

REACTIONS (3)
  - RENAL CANCER [None]
  - AMNESIA [None]
  - DRUG PRESCRIBING ERROR [None]
